FAERS Safety Report 13572727 (Version 1)
Quarter: 2017Q2

REPORT INFORMATION
  Report Type: Spontaneous
  Country: US (occurrence: US)
  Receive Date: 20170523
  Receipt Date: 20170523
  Transmission Date: 20170830
  Serious: No
  Sender: FDA-Public Use
  Company Number: US-JNJFOC-20170503531

PATIENT

DRUGS (1)
  1. INVEGA SUSTENNA [Suspect]
     Active Substance: PALIPERIDONE PALMITATE
     Indication: PRODUCT USED FOR UNKNOWN INDICATION
     Route: 030

REACTIONS (6)
  - Restless legs syndrome [Unknown]
  - Injection site reaction [Unknown]
  - Injection site erythema [Unknown]
  - Akathisia [Unknown]
  - Injection site pain [Unknown]
  - Injection site swelling [Unknown]
